FAERS Safety Report 12759169 (Version 1)
Quarter: 2016Q3

REPORT INFORMATION
  Report Type: Spontaneous
  Country: US (occurrence: US)
  Receive Date: 20160916
  Receipt Date: 20160916
  Transmission Date: 20161109
  Serious: Yes (Hospitalization)
  Sender: FDA-Public Use
  Company Number: None

PATIENT
  Age: 66 Year
  Sex: Female

DRUGS (2)
  1. NEORAL [Suspect]
     Active Substance: CYCLOSPORINE
     Indication: PANCREAS TRANSPLANT
     Dosage: 25MG 3AM-2PM ORAL
     Route: 048
     Dates: start: 20100806
  2. NEORAL [Suspect]
     Active Substance: CYCLOSPORINE
     Indication: RENAL TRANSPLANT
     Dosage: 25MG 3AM-2PM ORAL
     Route: 048
     Dates: start: 20100806

REACTIONS (1)
  - Hernia [None]

NARRATIVE: CASE EVENT DATE: 20160725
